FAERS Safety Report 6970192-9 (Version None)
Quarter: 2010Q3

REPORT INFORMATION
  Report Type: 
  Country: None (occurrence: None)
  Receive Date: 20100903
  Receipt Date: 20100819
  Transmission Date: 20110219
  Serious: Yes (Other)
  Sender: FDA-Public Use
  Company Number: AUR-APL-2010-02144

PATIENT
  Sex: Female

DRUGS (5)
  1. GLYBURIDE [Suspect]
  2. METFORMIN [Suspect]
  3. AZITHROMYCIN CAPSULE [Suspect]
  4. IRON [Suspect]
  5. PROTONIX [Suspect]
     Indication: GASTRIC HAEMORRHAGE

REACTIONS (8)
  - ABDOMINAL HERNIA [None]
  - ANAEMIA [None]
  - BODY TEMPERATURE INCREASED [None]
  - CHRONIC MYELOID LEUKAEMIA [None]
  - DISCOMFORT [None]
  - GASTRIC HAEMORRHAGE [None]
  - GASTROINTESTINAL DISORDER [None]
  - GENERAL PHYSICAL HEALTH DETERIORATION [None]
